FAERS Safety Report 23323355 (Version 1)
Quarter: 2023Q4

REPORT INFORMATION
  Report Type: Spontaneous
  Country: US (occurrence: None)
  Receive Date: 20231220
  Receipt Date: 20231220
  Transmission Date: 20240109
  Serious: No
  Sender: FDA-Public Use
  Company Number: US-ROCHE-3347270

PATIENT
  Sex: Female

DRUGS (1)
  1. RITUXAN [Suspect]
     Active Substance: RITUXIMAB
     Indication: Rheumatoid arthritis
     Route: 065

REACTIONS (9)
  - Pain [Unknown]
  - Night sweats [Unknown]
  - Chills [Unknown]
  - Headache [Unknown]
  - Ear pain [Unknown]
  - Ear congestion [Unknown]
  - Malaise [Unknown]
  - Exposure to fungus [Unknown]
  - Illness [Unknown]
